FAERS Safety Report 7536891-5 (Version None)
Quarter: 2011Q2

REPORT INFORMATION
  Report Type: 
  Country: None (occurrence: None)
  Receive Date: 20110609
  Receipt Date: 20110531
  Transmission Date: 20111010
  Serious: Yes (Other)
  Sender: FDA-Public Use
  Company Number: US-ELI_LILLY_AND_COMPANY-US201007007863

PATIENT
  Sex: Female
  Weight: 93.424 kg

DRUGS (11)
  1. CELEXA [Concomitant]
     Dosage: UNK
     Dates: start: 20020101
  2. PLENDIL [Concomitant]
     Dosage: 10 MG, QD
  3. LISINOPRIL [Concomitant]
     Dosage: 5 MG, EACH MORNING
  4. SIMVASTATIN [Concomitant]
     Dosage: UNK
     Dates: start: 20020101
  5. TRICOR [Concomitant]
     Dosage: 145 MG, QD
  6. BYETTA [Suspect]
     Dosage: 5 UG, BID
     Dates: start: 20070802, end: 20091102
  7. ZETIA [Concomitant]
     Dosage: 10 MG, QD
  8. GEODON [Concomitant]
     Dosage: 40 MG, BID
  9. METFORMIN HYDROCHLORIDE [Concomitant]
     Indication: DIABETES MELLITUS
     Dosage: 500 MG, BID
     Dates: start: 20020101
  10. LEXAPRO [Concomitant]
     Dosage: 10 MG, QD
  11. LISINOPRIL [Concomitant]
     Dosage: 2.5 MG, EACH EVENING

REACTIONS (2)
  - PANCREATITIS [None]
  - RENAL FAILURE [None]
